FAERS Safety Report 8826476 (Version 1)
Quarter: 2012Q4

REPORT INFORMATION
  Report Type: 
  Country: JP (occurrence: JP)
  Receive Date: 20121005
  Receipt Date: 20121005
  Transmission Date: 20130627
  Serious: Yes (Other)
  Sender: FDA-Public Use
  Company Number: JP-BAUSCH-BL-2012-001133

PATIENT
  Age: 3 Year
  Sex: Female

DRUGS (1)
  1. DEXAMETHASONE [Suspect]
     Indication: ACUTE LYMPHOCYTIC LEUKAEMIA

REACTIONS (3)
  - Cytomegalovirus chorioretinitis [Recovered/Resolved]
  - Pneumocystis jiroveci pneumonia [Recovered/Resolved]
  - Pyrexia [Recovered/Resolved]
